FAERS Safety Report 5753024-6 (Version None)
Quarter: 2008Q2

REPORT INFORMATION
  Report Type: 
  Country: None (occurrence: None)
  Receive Date: 20080527
  Receipt Date: 20080516
  Transmission Date: 20081010
  Serious: Yes (Disabling)
  Sender: FDA-Public Use
  Company Number: GXKR2008GB04532

PATIENT
  Age: 27 Year
  Sex: Female
  Weight: 78 kg

DRUGS (2)
  1. FLUOXETINE [Suspect]
     Indication: DEPRESSED MOOD
     Dosage: 20 MG, ORAL
     Route: 048
     Dates: start: 20080403
  2. ALCOHOL(ETHANOL) [Suspect]

REACTIONS (2)
  - AGGRESSION [None]
  - ALCOHOL INTERACTION [None]
